FAERS Safety Report 10670405 (Version 1)
Quarter: 2014Q4

REPORT INFORMATION
  Report Type: Spontaneous
  Country: NZ (occurrence: None)
  Receive Date: 20141218
  Receipt Date: 20141218
  Transmission Date: 20150529
  Serious: Yes (Other)
  Sender: FDA-Public Use
  Company Number: NZ-DEXPHARM-20141053

PATIENT
  Age: 52 Year
  Sex: Female

DRUGS (1)
  1. DICLOFENAC [Suspect]
     Active Substance: DICLOFENAC
     Indication: INFLUENZA
     Dosage: 75 MG MILLIGRAM(S), 1 IN 1 DAYS, INTRAMUSCULAR?
     Route: 030

REACTIONS (2)
  - Skin necrosis [None]
  - Injection site necrosis [None]
